FAERS Safety Report 5413299-X (Version None)
Quarter: 2007Q3

REPORT INFORMATION
  Report Type: 
  Country: None (occurrence: None)
  Receive Date: 20070810
  Receipt Date: 20070713
  Transmission Date: 20080115
  Serious: Yes (Other)
  Sender: FDA-Public Use
  Company Number: 2007RR-08708

PATIENT
  Age: 52 Year
  Sex: Female

DRUGS (3)
  1. SERTRALINE [Suspect]
     Indication: DEPRESSION
     Dosage: 50 MG, QD,
  2. NIMESULIDE (NIMESULIDE) UNKNOWN [Suspect]
     Indication: PHARYNGOLARYNGEAL PAIN
     Dosage: 100 MG
  3. NORTRIPTYLINE HCL [Concomitant]

REACTIONS (5)
  - DUODENAL OBSTRUCTION [None]
  - ERYTHEMA [None]
  - OEDEMA [None]
  - OESOPHAGEAL ULCER [None]
  - RETROPERITONEAL HAEMATOMA [None]
